FAERS Safety Report 24713144 (Version 1)
Quarter: 2024Q4

REPORT INFORMATION
  Report Type: Spontaneous
  Country: FR (occurrence: FR)
  Receive Date: 20241209
  Receipt Date: 20241209
  Transmission Date: 20250114
  Serious: Yes (Death)
  Sender: MYLAN
  Company Number: None

PATIENT
  Age: 55 Year
  Sex: Male

DRUGS (10)
  1. QUETIAPINE [Interacting]
     Active Substance: QUETIAPINE
     Indication: Schizophrenia
     Dosage: 300 MILLIGRAM, BID (600 MILLIGRAM, QD) (300 MG 2 TIMES A DAY)
     Route: 048
  2. CLOMIPRAMINE [Interacting]
     Active Substance: CLOMIPRAMINE
     Indication: Schizoaffective disorder depressive type
     Dosage: 75 MILLIGRAM, BID (150 MILLIGRAM, QD) (75 MG 2 TIMES A DAY)
     Route: 048
  3. LAMOTRIGINE [Interacting]
     Active Substance: LAMOTRIGINE
     Indication: Epilepsy
     Dosage: 50 MILLIGRAM, BID (100 MILLIGRAM, QD) (50 MG 2 TIMES A DAY)
     Route: 048
  4. QUVIVIQ [Interacting]
     Active Substance: DARIDOREXANT
     Indication: Product used for unknown indication
     Dosage: 50 MILLIGRAM, QD
     Route: 048
     Dates: start: 20241109
  5. LOXAPINE [Interacting]
     Active Substance: LOXAPINE
     Indication: Agitation
     Dosage: 250 MILLIGRAM, PRN
     Route: 030
     Dates: start: 20241109, end: 20241109
  6. CYAMEMAZINE [Interacting]
     Active Substance: CYAMEMAZINE
     Indication: Schizophrenia
     Dosage: 20 GTT DROPS, QD
     Route: 048
     Dates: start: 202410
  7. HALDOL [Interacting]
     Active Substance: HALOPERIDOL
     Indication: Schizophrenia
     Dosage: 120 GTT DROPS, QD (70 DROPS MORNING + 50 DROPS EVENING)
     Route: 048
  8. PERICIAZINE [Interacting]
     Active Substance: PERICIAZINE
     Indication: Schizophrenia
     Dosage: 20 GTT DROPS, TID (60 GTT DROPS, QD) (20 DROPS 3 TIMES A DAY)
     Route: 048
  9. OXAZEPAM [Interacting]
     Active Substance: OXAZEPAM
     Indication: Anxiety
     Dosage: 50 MILLIGRAM, TID (150 MILLIGRAM, QD) (50 MG 3 TIMES A DAY)
     Route: 048
  10. TROPATEPINE HYDROCHLORIDE [Concomitant]
     Active Substance: TROPATEPINE HYDROCHLORIDE
     Dosage: UNK
     Route: 065

REACTIONS (2)
  - Death [Fatal]
  - Drug interaction [Fatal]

NARRATIVE: CASE EVENT DATE: 20241109
